FAERS Safety Report 8050647-9 (Version None)
Quarter: 2012Q1

REPORT INFORMATION
  Report Type: 
  Country: None (occurrence: None)
  Receive Date: 20120117
  Receipt Date: 20120104
  Transmission Date: 20120608
  Serious: Yes (Life-Threatening, Hospitalization, Other)
  Sender: FDA-Public Use
  Company Number: FR-PFIZER INC-K201101008

PATIENT
  Age: 60 Year
  Sex: Male

DRUGS (5)
  1. RAMIPRIL [Suspect]
     Dosage: 1.25 MG DAILY
     Route: 048
     Dates: start: 20110802, end: 20110807
  2. PREVISCAN [Suspect]
     Dosage: 15 MG DAILY
     Route: 048
     Dates: start: 20110701, end: 20110809
  3. CARVEDILOL [Suspect]
     Dosage: 12.5 MG TWICE DAILY
     Route: 048
     Dates: start: 20110701
  4. RAMIPRIL [Suspect]
     Dosage: 1.25MG TWICE DAILY
     Route: 048
     Dates: start: 20070701, end: 20110801
  5. CORDARONE [Suspect]
     Dosage: 200 MG, DAILY
     Route: 048
     Dates: start: 20110701

REACTIONS (2)
  - SEPSIS [None]
  - AGRANULOCYTOSIS [None]
